FAERS Safety Report 10915666 (Version 1)
Quarter: 2015Q1

REPORT INFORMATION
  Report Type: Spontaneous
  Country: US (occurrence: None)
  Receive Date: 20150311
  Receipt Date: 20150311
  Transmission Date: 20150721
  Serious: No
  Sender: FDA-Public Use
  Company Number: None

PATIENT
  Age: 57 Year
  Sex: Female
  Weight: 79.83 kg

DRUGS (24)
  1. MORPHINE [Concomitant]
     Active Substance: MORPHINE
  2. MONTELUKAST [Concomitant]
     Active Substance: MONTELUKAST SODIUM
  3. KELP [Concomitant]
     Active Substance: KELP
  4. ALBUTEROL. [Concomitant]
     Active Substance: ALBUTEROL
  5. VITAMIN C [Concomitant]
     Active Substance: ASCORBIC ACID
  6. OMEPRAZOLE. [Concomitant]
     Active Substance: OMEPRAZOLE
  7. PROPRANOLOL [Concomitant]
     Active Substance: PROPRANOLOL\PROPRANOLOL HYDROCHLORIDE
  8. SERTRALINE [Concomitant]
     Active Substance: SERTRALINE HYDROCHLORIDE
  9. TYLENOL [Concomitant]
     Active Substance: ACETAMINOPHEN
  10. SAPHRIS [Suspect]
     Active Substance: ASENAPINE MALEATE
     Indication: PRODUCT USED FOR UNKNOWN INDICATION
     Route: 048
     Dates: start: 20141012, end: 20141013
  11. LACTULOSE. [Concomitant]
     Active Substance: LACTULOSE
  12. HYDROXYZINE [Concomitant]
     Active Substance: HYDROXYZINE\HYDROXYZINE HYDROCHLORIDE
  13. METHOTREXATE [Concomitant]
     Active Substance: METHOTREXATE
  14. SPIRONOLACTONE. [Concomitant]
     Active Substance: SPIRONOLACTONE
  15. LORAZEPAM. [Concomitant]
     Active Substance: LORAZEPAM
  16. MVI [Concomitant]
     Active Substance: VITAMINS
  17. LASIX [Concomitant]
     Active Substance: FUROSEMIDE
  18. NEURONTIN [Concomitant]
     Active Substance: GABAPENTIN
  19. K+ [Concomitant]
     Active Substance: POTASSIUM CATION
  20. ESTRADIOL. [Concomitant]
     Active Substance: ESTRADIOL
  21. NTG [Concomitant]
     Active Substance: NITROGLYCERIN
  22. MEDROXYPROGESTERONE [Concomitant]
     Active Substance: MEDROXYPROGESTERONE
  23. TRAZODONE [Concomitant]
     Active Substance: TRAZODONE HYDROCHLORIDE
  24. ALBUTEROL. [Concomitant]
     Active Substance: ALBUTEROL

REACTIONS (12)
  - Pruritus [None]
  - Product physical issue [None]
  - Vomiting [None]
  - Respiratory distress [None]
  - Hallucination [None]
  - Neuralgia [None]
  - Rash [None]
  - Nausea [None]
  - Tongue biting [None]
  - Illusion [None]
  - Tremor [None]
  - Bruxism [None]

NARRATIVE: CASE EVENT DATE: 20141022
